FAERS Safety Report 20752509 (Version 1)
Quarter: 2022Q2

REPORT INFORMATION
  Report Type: Spontaneous
  Country: US (occurrence: None)
  Receive Date: 20220426
  Receipt Date: 20220426
  Transmission Date: 20220721
  Serious: No
  Sender: FDA-Public Use
  Company Number: US-ROCHE-2863265

PATIENT
  Sex: Male

DRUGS (10)
  1. ESBRIET [Suspect]
     Active Substance: PIRFENIDONE
     Indication: Pulmonary fibrosis
     Route: 048
  2. ATORVASTATIN [Concomitant]
     Active Substance: ATORVASTATIN
  3. CYPROHEPTADINE [Concomitant]
     Active Substance: CYPROHEPTADINE
  4. DALIRESP [Concomitant]
     Active Substance: ROFLUMILAST
  5. FAMOTIDINE [Concomitant]
     Active Substance: FAMOTIDINE
  6. FISH OIL [Concomitant]
     Active Substance: FISH OIL
  7. PREDNISONE [Concomitant]
     Active Substance: PREDNISONE
  8. SENTRY SENIOR [Concomitant]
  9. VITAMIN C [Concomitant]
     Active Substance: ASCORBIC ACID
  10. VITAMIN D3 [Concomitant]
     Active Substance: CHOLECALCIFEROL

REACTIONS (3)
  - Extra dose administered [Unknown]
  - Chest pain [Not Recovered/Not Resolved]
  - Vomiting [Not Recovered/Not Resolved]
